FAERS Safety Report 4630747-3 (Version None)
Quarter: 2005Q2

REPORT INFORMATION
  Report Type: 
  Country: None (occurrence: None)
  Receive Date: 20050406
  Receipt Date: 20050317
  Transmission Date: 20051028
  Serious: Yes (Death, Other)
  Sender: FDA-Public Use
  Company Number: USA050392241

PATIENT
  Age: 57 Year
  Sex: Female
  Weight: 178 kg

DRUGS (10)
  1. XIGRIS [Suspect]
     Indication: ABDOMINAL SEPSIS
     Dosage: 18 UG/KG/HR
     Dates: start: 20041022, end: 20041025
  2. GENTAMICIN [Concomitant]
  3. ZOSYN [Concomitant]
  4. HEPARIN [Concomitant]
  5. AVELOX [Concomitant]
  6. TYLENOL (CAPLET) [Concomitant]
  7. PHENYLEPHRINE [Concomitant]
  8. DOPAMINE [Concomitant]
  9. NOREPINEPHRINE [Concomitant]
  10. VASOPRESSIN INJECTION [Concomitant]

REACTIONS (8)
  - ACTIVATED PARTIAL THROMBOPLASTIN TIME PROLONGED [None]
  - HAEMOGLOBIN DECREASED [None]
  - HAEMORRHAGE URINARY TRACT [None]
  - INTERNATIONAL NORMALISED RATIO INCREASED [None]
  - MOUTH HAEMORRHAGE [None]
  - PLATELET COUNT DECREASED [None]
  - PROTHROMBIN TIME PROLONGED [None]
  - SEPTIC SHOCK [None]
